FAERS Safety Report 25992720 (Version 1)
Quarter: 2025Q4

REPORT INFORMATION
  Report Type: Spontaneous
  Country: US (occurrence: US)
  Receive Date: 20251103
  Receipt Date: 20251103
  Transmission Date: 20260117
  Serious: No
  Sender: SANDOZ
  Company Number: US-SANDOZ-SDZ2025US081406

PATIENT
  Age: 51 Year
  Sex: Female

DRUGS (1)
  1. ESTRADIOL [Suspect]
     Active Substance: ESTRADIOL
     Indication: Product used for unknown indication
     Dosage: LENGTH OF TREATMENT: 2 MONTHS (STRENGTH 0.0375MG/24H 8TTS)
     Route: 062

REACTIONS (2)
  - Poor quality device used [Unknown]
  - Device adhesion issue [Unknown]
